FAERS Safety Report 5449897-7 (Version None)
Quarter: 2007Q3

REPORT INFORMATION
  Report Type: 
  Country: None (occurrence: None)
  Receive Date: 20070910
  Receipt Date: 20070910
  Transmission Date: 20080115
  Serious: Yes (Hospitalization)
  Sender: FDA-Public Use
  Company Number: None

PATIENT
  Sex: Female
  Weight: 64 kg

DRUGS (11)
  1. CYTARABINE [Suspect]
     Dosage: 3000 MG
  2. ETOPOSIDE [Suspect]
     Dosage: 240 MG
  3. IFOSFAMIDE [Suspect]
     Dosage: 6000 MG
  4. ATIVAN [Concomitant]
  5. COMPAZINE [Concomitant]
  6. LEXAPRO [Concomitant]
  7. LIDOCAINE VISCOUS ORAL SPRAY [Concomitant]
  8. NEUPOGEN [Concomitant]
  9. NYSTATIN [Concomitant]
  10. PRILOSEC [Concomitant]
  11. SCOPOLAMINE BASE PATCH [Concomitant]

REACTIONS (13)
  - BLOOD POTASSIUM DECREASED [None]
  - CELLULITIS [None]
  - CULTURE WOUND POSITIVE [None]
  - ERYTHEMA [None]
  - FEBRILE NEUTROPENIA [None]
  - GANGRENE [None]
  - HAEMOGLOBIN DECREASED [None]
  - HYPOTENSION [None]
  - IMPAIRED HEALING [None]
  - PATHOGEN RESISTANCE [None]
  - PSEUDOMONAS INFECTION [None]
  - STAPHYLOCOCCAL INFECTION [None]
  - THROMBOCYTOPENIA [None]
